FAERS Safety Report 9472495 (Version 1)
Quarter: 2013Q3

REPORT INFORMATION
  Report Type: Report from Study
  Country: DE (occurrence: DE)
  Receive Date: 20130823
  Receipt Date: 20130823
  Transmission Date: 20140515
  Serious: Yes (Hospitalization, Other)
  Sender: FDA-Public Use
  Company Number: PHHY2013DE090834

PATIENT
  Sex: Male

DRUGS (2)
  1. GILENYA [Suspect]
     Indication: MULTIPLE SCLEROSIS
     Dosage: 0.5 MG, QD
     Route: 048
     Dates: start: 20111012
  2. CORTISONE [Suspect]
     Dosage: 1 G, UNK

REACTIONS (8)
  - Reading disorder [Recovered/Resolved]
  - Fatigue [Recovered/Resolved]
  - Blood pressure increased [Not Recovered/Not Resolved]
  - Restlessness [Recovered/Resolved]
  - Cardiac discomfort [Not Recovered/Not Resolved]
  - Palpitations [Recovered/Resolved]
  - Malaise [Unknown]
  - Dyspnoea [Not Recovered/Not Resolved]
